FAERS Safety Report 16716152 (Version 1)
Quarter: 2019Q3

REPORT INFORMATION
  Report Type: Spontaneous
  Country: ES (occurrence: ES)
  Receive Date: 20190819
  Receipt Date: 20190819
  Transmission Date: 20191005
  Serious: Yes (Hospitalization)
  Sender: FDA-Public Use
  Company Number: ES-CELGENEUS-ESP-20190411215

PATIENT
  Age: 69 Year
  Sex: Male
  Weight: 73 kg

DRUGS (4)
  1. ABRAXANE [Suspect]
     Active Substance: PACLITAXEL
     Route: 041
     Dates: start: 20190313, end: 20190313
  2. ABRAXANE [Suspect]
     Active Substance: PACLITAXEL
     Indication: PANCREATIC CARCINOMA METASTATIC
     Route: 041
     Dates: start: 20190306
  3. GEMCITABINE. [Concomitant]
     Active Substance: GEMCITABINE
     Indication: PANCREATIC CARCINOMA METASTATIC
     Route: 041
     Dates: start: 20190306
  4. GEMCITABINE. [Concomitant]
     Active Substance: GEMCITABINE
     Route: 041
     Dates: start: 20190313, end: 20190313

REACTIONS (1)
  - Biliary sepsis [Recovered/Resolved]

NARRATIVE: CASE EVENT DATE: 20190414
